FAERS Safety Report 7539953-1 (Version None)
Quarter: 2011Q2

REPORT INFORMATION
  Report Type: 
  Country: None (occurrence: None)
  Receive Date: 20110603
  Receipt Date: 20110531
  Transmission Date: 20111010
  Serious: Yes (Death, Life-Threatening, Hospitalization, Other)
  Sender: FDA-Public Use
  Company Number: 2010AC000196

PATIENT
  Age: 90 Year
  Sex: Female

DRUGS (12)
  1. DIGOXIN [Suspect]
     Dosage: 0.125 MG, QD, PO
     Route: 048
     Dates: start: 20060701, end: 20080314
  2. DIGOXIN [Suspect]
     Dosage: 0.25 MG, QD, PO
     Route: 048
     Dates: start: 19970101, end: 20060301
  3. CARDIZEM [Concomitant]
  4. ARICEPT [Concomitant]
  5. VIOXX [Concomitant]
  6. MOBIC [Concomitant]
  7. WARFARIN SODIUM [Concomitant]
  8. TIMOLOL MALEATE [Concomitant]
  9. LOVENOX [Concomitant]
  10. ROXANOL [Concomitant]
  11. ASPIRIN [Concomitant]
  12. ATIVAN [Concomitant]

REACTIONS (27)
  - HYPERTENSION [None]
  - DILATATION VENTRICULAR [None]
  - TRICUSPID VALVE INCOMPETENCE [None]
  - DIZZINESS [None]
  - HAEMATOMA [None]
  - JUGULAR VEIN DISTENSION [None]
  - NAUSEA [None]
  - ATRIAL FIBRILLATION [None]
  - ALTERED STATE OF CONSCIOUSNESS [None]
  - EJECTION FRACTION DECREASED [None]
  - LACUNAR INFARCTION [None]
  - VIITH NERVE PARALYSIS [None]
  - ASPIRATION [None]
  - MULTIPLE INJURIES [None]
  - MITRAL VALVE INCOMPETENCE [None]
  - AORTIC VALVE INCOMPETENCE [None]
  - CONFUSIONAL STATE [None]
  - HEADACHE [None]
  - CEREBROVASCULAR ACCIDENT [None]
  - ATAXIA [None]
  - FALL [None]
  - ENCEPHALOMALACIA [None]
  - ECONOMIC PROBLEM [None]
  - PLEURAL EFFUSION [None]
  - DELIRIUM [None]
  - CAROTID ARTERY OCCLUSION [None]
  - DYSPHAGIA [None]
